FAERS Safety Report 19604691 (Version 1)
Quarter: 2021Q3

REPORT INFORMATION
  Report Type: Spontaneous
  Country: FR (occurrence: FR)
  Receive Date: 20210724
  Receipt Date: 20210724
  Transmission Date: 20211014
  Serious: Yes (Other)
  Sender: FDA-Public Use
  Company Number: FR-EXELIXIS-CABO-21042525

PATIENT
  Age: 73 Year
  Sex: Female
  Weight: 57 kg

DRUGS (15)
  1. BISOPROLOL [Concomitant]
     Active Substance: BISOPROLOL
  2. SMECTA [Concomitant]
     Active Substance: MONTMORILLONITE
  3. LEVOTHYROX [Concomitant]
     Active Substance: LEVOTHYROXINE
  4. ZYLORIC [Concomitant]
     Active Substance: ALLOPURINOL
  5. CABOMETYX [Suspect]
     Active Substance: CABOZANTINIB S-MALATE
     Indication: CLEAR CELL RENAL CELL CARCINOMA
     Dosage: 1 {DF}, QD
     Route: 048
     Dates: start: 20201125, end: 20201231
  6. CABOMETYX [Suspect]
     Active Substance: CABOZANTINIB S-MALATE
     Dosage: 2 {DF}, QD
     Route: 048
     Dates: start: 20210101, end: 20210106
  7. CABOMETYX [Suspect]
     Active Substance: CABOZANTINIB S-MALATE
     Dosage: 1 {DF}, QD
     Route: 048
     Dates: start: 20210115, end: 20210429
  8. ATORVASTATINE [Concomitant]
     Active Substance: ATORVASTATIN
  9. CABOMETYX [Suspect]
     Active Substance: CABOZANTINIB S-MALATE
     Dosage: 1 {DF}, QD
     Route: 048
     Dates: start: 20210107, end: 20210108
  10. RAMIPRIL. [Concomitant]
     Active Substance: RAMIPRIL
  11. HYDROCORTISONE. [Concomitant]
     Active Substance: HYDROCORTISONE
  12. PANTOPRAZOLE [Concomitant]
     Active Substance: PANTOPRAZOLE
  13. IMODIUM [Concomitant]
     Active Substance: LOPERAMIDE HYDROCHLORIDE
  14. PARACETAMOL [Concomitant]
     Active Substance: ACETAMINOPHEN
  15. APIXABAN [Concomitant]
     Active Substance: APIXABAN

REACTIONS (1)
  - Myocarditis [Recovering/Resolving]

NARRATIVE: CASE EVENT DATE: 20210426
